FAERS Safety Report 8051901-7 (Version None)
Quarter: 2012Q1

REPORT INFORMATION
  Report Type: 
  Country: None (occurrence: None)
  Receive Date: 20120111
  Receipt Date: 20120105
  Transmission Date: 20120608
  Serious: Yes (Death)
  Sender: FDA-Public Use
  Company Number: DKLU1075397

PATIENT
  Age: 35 Year
  Sex: Female

DRUGS (2)
  1. SABRIL [Suspect]
     Indication: EPILEPSY
     Dosage: 2500 MG MILLIGRAM(S)
  2. OXCARBAZEPINE [Suspect]
     Indication: EPILEPSY
     Dosage: 2100 MG MILLIGRAM(S)

REACTIONS (1)
  - SUDDEN UNEXPLAINED DEATH IN EPILEPSY [None]
